FAERS Safety Report 7718012-9 (Version None)
Quarter: 2011Q3

REPORT INFORMATION
  Report Type: 
  Country: None (occurrence: None)
  Receive Date: 20110830
  Receipt Date: 20110608
  Transmission Date: 20111222
  Serious: No
  Sender: FDA-Public Use
  Company Number: US-AMGEN-USASP2011029494

PATIENT
  Age: 43 Year
  Sex: Female

DRUGS (7)
  1. ESTROGENIC SUBSTANCE [Concomitant]
  2. LISINOPRIL [Concomitant]
  3. NPLATE [Suspect]
     Indication: IDIOPATHIC THROMBOCYTOPENIC PURPURA
     Dosage: UNK
     Dates: start: 20110601
  4. PREDNISONE [Concomitant]
  5. OMEPRAZOLE [Concomitant]
  6. METFORMIN HYDROCHLORIDE [Concomitant]
  7. INSULIN [Concomitant]

REACTIONS (1)
  - RHESUS ANTIBODIES POSITIVE [None]
